FAERS Safety Report 7478939-2 (Version None)
Quarter: 2011Q2

REPORT INFORMATION
  Report Type: 
  Country: None (occurrence: None)
  Receive Date: 20110513
  Receipt Date: 20110427
  Transmission Date: 20111010
  Serious: Yes (Death)
  Sender: FDA-Public Use
  Company Number: DE-BAYER-2011-032158

PATIENT
  Age: 40 Year
  Sex: Female

DRUGS (1)
  1. BETAFERON [Suspect]

REACTIONS (1)
  - COMPLETED SUICIDE [None]
